FAERS Safety Report 5905384-0 (Version None)
Quarter: 2008Q4

REPORT INFORMATION
  Report Type: 
  Country: None (occurrence: None)
  Receive Date: 20081001
  Receipt Date: 20080919
  Transmission Date: 20090506
  Serious: Yes (Hospitalization)
  Sender: FDA-Public Use
  Company Number: FR-PFIZER INC-2008080228

PATIENT
  Sex: Male
  Weight: 52 kg

DRUGS (5)
  1. SU-011,248 [Suspect]
     Indication: LUNG CANCER METASTATIC
     Route: 048
     Dates: start: 20080709
  2. FONDAPARINUX SODIUM [Concomitant]
     Route: 058
     Dates: start: 20080723
  3. ALL OTHER THERAPEUTIC PRODUCTS [Concomitant]
     Route: 048
     Dates: start: 20070523
  4. ESOMEPRAZOLE MAGNESIUM [Concomitant]
     Route: 048
     Dates: start: 20070503
  5. METOCLOPRAMIDE [Concomitant]
     Route: 048
     Dates: start: 20080819

REACTIONS (5)
  - APHAGIA [None]
  - GENERAL PHYSICAL CONDITION ABNORMAL [None]
  - JAUNDICE [None]
  - ORAL PAIN [None]
  - VOMITING [None]
